FAERS Safety Report 8583597-X (Version None)
Quarter: 2012Q3

REPORT INFORMATION
  Report Type: 
  Country: None (occurrence: None)
  Receive Date: 20120809
  Receipt Date: 20120807
  Transmission Date: 20120928
  Serious: Yes (Hospitalization)
  Sender: FDA-Public Use
  Company Number: DE-AMGEN-DEUSP2012049484

PATIENT
  Sex: Male

DRUGS (1)
  1. NPLATE [Suspect]
     Indication: IDIOPATHIC THROMBOCYTOPENIC PURPURA
     Dosage: 700 MUG, UNK
     Dates: start: 20100101

REACTIONS (3)
  - PORTAL VEIN THROMBOSIS [None]
  - LIVER TRANSPLANT [None]
  - IMMUNOSUPPRESSION [None]
